FAERS Safety Report 9125011 (Version 1)
Quarter: 2013Q1

REPORT INFORMATION
  Report Type: Spontaneous
  Country: AT (occurrence: AT)
  Receive Date: 20130121
  Receipt Date: 20130121
  Transmission Date: 20140127
  Serious: Yes (Other)
  Sender: FDA-Public Use
  Company Number: PHHY2012AT115714

PATIENT
  Age: 75 Year
  Sex: Female

DRUGS (4)
  1. AMLODIPIN [Suspect]
     Route: 048
  2. DILATREND [Concomitant]
  3. DIOVAN [Concomitant]
  4. LASIX [Concomitant]

REACTIONS (4)
  - Cholelithiasis [Recovered/Resolved]
  - Nausea [Recovered/Resolved]
  - Vomiting [Recovered/Resolved]
  - Liver function test abnormal [Recovered/Resolved]
